FAERS Safety Report 6285395-9 (Version None)
Quarter: 2009Q3

REPORT INFORMATION
  Report Type: 
  Country: None (occurrence: None)
  Receive Date: 20090723
  Receipt Date: 20090709
  Transmission Date: 20100115
  Serious: Yes (Hospitalization)
  Sender: FDA-Public Use
  Company Number: 2009BM000154

PATIENT
  Age: 15 Year
  Sex: Male
  Weight: 19 kg

DRUGS (1)
  1. NAGLAZYME [Suspect]
     Indication: MUCOPOLYSACCHARIDOSIS VI
     Dosage: 4 VIALS/QW;IVDRP
     Route: 041
     Dates: start: 20071127

REACTIONS (4)
  - IMPLANT OBSTRUCTION [None]
  - INCREASED BRONCHIAL SECRETION [None]
  - LUNG INFECTION PSEUDOMONAL [None]
  - RESPIRATORY DISTRESS [None]
